FAERS Safety Report 7333384-5 (Version None)
Quarter: 2011Q1

REPORT INFORMATION
  Report Type: 
  Country: None (occurrence: None)
  Receive Date: 20110304
  Receipt Date: 20110223
  Transmission Date: 20110831
  Serious: Yes (Other)
  Sender: FDA-Public Use
  Company Number: US-B.I. PHARMACEUTICALS,INC./RIDGEFIELD-2011-BP-06213BP

PATIENT
  Age: 87 Year
  Sex: Male

DRUGS (7)
  1. LOPRESSOR [Concomitant]
     Indication: HYPERTENSION
     Route: 048
  2. ASA [Concomitant]
     Indication: CARDIAC DISORDER
     Dosage: 81 MG
     Route: 048
  3. SYNTHROID [Concomitant]
     Indication: HYPOTHYROIDISM
     Route: 048
  4. DIGOXIN [Concomitant]
     Indication: CARDIAC DISORDER
     Route: 048
  5. LIPITOR [Concomitant]
     Indication: BLOOD CHOLESTEROL
     Route: 048
  6. PRADAXA [Suspect]
     Indication: ATRIAL FIBRILLATION
     Dosage: 150 MG
     Route: 048
     Dates: start: 20110113
  7. LASIX [Concomitant]
     Indication: CARDIAC DISORDER
     Route: 048

REACTIONS (5)
  - TREMOR [None]
  - ABASIA [None]
  - HAEMOPTYSIS [None]
  - ASTHENIA [None]
  - LABORATORY TEST ABNORMAL [None]
